FAERS Safety Report 11166311 (Version 1)
Quarter: 2015Q2

REPORT INFORMATION
  Report Type: Spontaneous
  Country: GB (occurrence: GB)
  Receive Date: 20150605
  Receipt Date: 20150605
  Transmission Date: 20150821
  Serious: Yes (Other)
  Sender: FDA-Public Use
  Company Number: GB-ACCORD-031037

PATIENT
  Age: 55 Year
  Sex: Male
  Weight: 90 kg

DRUGS (30)
  1. CHLORAMPHENICOL [Concomitant]
     Active Substance: CHLORAMPHENICOL
  2. DEXMEDETOMIDINE/DEXMEDETOMIDINE HYDROCHLORIDE [Concomitant]
  3. HYDRALAZINE [Concomitant]
     Active Substance: HYDRALAZINE HYDROCHLORIDE
  4. MEROPENEM. [Concomitant]
     Active Substance: MEROPENEM
  5. DOXAZOSIN [Concomitant]
     Active Substance: DOXAZOSIN\DOXAZOSIN MESYLATE
  6. LANSOPRAZOLE. [Concomitant]
     Active Substance: LANSOPRAZOLE
  7. SANDO-K [Concomitant]
     Active Substance: POTASSIUM BICARBONATE\POTASSIUM CHLORIDE
  8. SODIUM BICARBONATE. [Concomitant]
     Active Substance: SODIUM BICARBONATE
  9. DALTEPARIN [Concomitant]
     Active Substance: DALTEPARIN
  10. MAGNESIUM HYDROXIDE. [Concomitant]
     Active Substance: MAGNESIUM HYDROXIDE
  11. PARACETAMOL [Concomitant]
     Active Substance: ACETAMINOPHEN
  12. SENNA [Concomitant]
     Active Substance: SENNA LEAF\SENNOSIDES\SENNOSIDES A AND B
  13. FOLIC ACID. [Concomitant]
     Active Substance: FOLIC ACID
  14. INSULIN [Concomitant]
     Active Substance: INSULIN NOS
  15. LORAZEPAM. [Concomitant]
     Active Substance: LORAZEPAM
  16. AMLODIPINE [Concomitant]
     Active Substance: AMLODIPINE BESYLATE
  17. CLOPIDOGREL [Concomitant]
     Active Substance: CLOPIDOGREL BISULFATE
  18. MINOXIDIL. [Concomitant]
     Active Substance: MINOXIDIL
  19. VENOFER [Concomitant]
     Active Substance: IRON SUCROSE
  20. LEVETIRACETAM. [Suspect]
     Active Substance: LEVETIRACETAM
     Indication: SEIZURE
     Dosage: 1ST DOSE WAS INTRAVEOUS, SUBSEQUENT WERE ENTERAL
     Dates: start: 20150514, end: 20150515
  21. DOCUSATE/DOCUSATE CALCIUM/DOCUSATE POTASSIUM/DOCUSATE SODIUM [Concomitant]
  22. GLICLAZIDE [Concomitant]
     Active Substance: GLICLAZIDE
  23. MIRCERA [Concomitant]
     Active Substance: METHOXY POLYETHYLENE GLYCOL-EPOETIN BETA
  24. ADDIPHOS [Concomitant]
     Active Substance: POTASSIUM HYDROXIDE\POTASSIUM PHOSPHATE, DIBASIC\SODIUM PHOSPHATE, DIBASIC, ANHYDROUS
  25. ALFACALCIDOL [Concomitant]
     Active Substance: ALFACALCIDOL
  26. ASCORBIC ACID/ASCORBYL PALMITATE/SODIUM ASCORBATE [Concomitant]
  27. BISOPROLOL [Concomitant]
     Active Substance: BISOPROLOL
  28. FENTANYL. [Concomitant]
     Active Substance: FENTANYL
  29. FUROSEMIDE. [Concomitant]
     Active Substance: FUROSEMIDE
  30. LACTULOSE. [Concomitant]
     Active Substance: LACTULOSE

REACTIONS (1)
  - Methaemoglobinaemia [Recovering/Resolving]

NARRATIVE: CASE EVENT DATE: 20150514
